FAERS Safety Report 16287847 (Version 2)
Quarter: 2021Q1

REPORT INFORMATION
  Report Type: Spontaneous
  Country: US (occurrence: US)
  Receive Date: 20190508
  Receipt Date: 20210219
  Transmission Date: 20210419
  Serious: Yes (Hospitalization, Other)
  Sender: FDA-Public Use
  Company Number: US-ASTRAZENECA-2019SE62609

PATIENT
  Age: 34 Year
  Sex: Female
  Weight: 99.8 kg

DRUGS (37)
  1. TUMS [Concomitant]
     Active Substance: CALCIUM CARBONATE
     Dates: start: 1994, end: 1997
  2. FLUCONAZOLE. [Concomitant]
     Active Substance: FLUCONAZOLE
  3. ALENDRONATE [Concomitant]
     Active Substance: ALENDRONATE SODIUM
  4. CITALOPRAM [Concomitant]
     Active Substance: CITALOPRAM HYDROBROMIDE
  5. LASIX [Concomitant]
     Active Substance: FUROSEMIDE
  6. NEXIUM [Suspect]
     Active Substance: ESOMEPRAZOLE MAGNESIUM
     Indication: GASTROOESOPHAGEAL REFLUX DISEASE
     Route: 048
     Dates: start: 199912, end: 201001
  7. PREDNISONE. [Concomitant]
     Active Substance: PREDNISONE
     Indication: INFLAMMATION
     Dates: start: 201105, end: 201108
  8. ACYCLOVIR. [Concomitant]
     Active Substance: ACYCLOVIR
  9. NEXIUM [Suspect]
     Active Substance: ESOMEPRAZOLE MAGNESIUM
     Indication: GASTROOESOPHAGEAL REFLUX DISEASE
     Route: 048
     Dates: start: 2001, end: 2019
  10. NEURONTIN [Concomitant]
     Active Substance: GABAPENTIN
  11. PROTONIX [Suspect]
     Active Substance: PANTOPRAZOLE SODIUM
     Indication: GASTROOESOPHAGEAL REFLUX DISEASE
     Route: 065
     Dates: start: 2000, end: 2019
  12. LEVOTHYROXINE. [Concomitant]
     Active Substance: LEVOTHYROXINE
     Indication: HYPOTHYROIDISM
     Dates: start: 201105
  13. MULTIVITAMINS [Concomitant]
     Active Substance: VITAMINS
     Indication: SUPPLEMENTATION THERAPY
     Dates: start: 1995
  14. KLOR?CON [Concomitant]
     Active Substance: POTASSIUM CHLORIDE
  15. METOLAZONE. [Concomitant]
     Active Substance: METOLAZONE
  16. CLONIDINE. [Concomitant]
     Active Substance: CLONIDINE
  17. DILTIAZEM. [Concomitant]
     Active Substance: DILTIAZEM
  18. ALPRAZOLAM. [Concomitant]
     Active Substance: ALPRAZOLAM
  19. METRONIDAZOL [Concomitant]
     Active Substance: METRONIDAZOLE
  20. IBUPROFEN. [Concomitant]
     Active Substance: IBUPROFEN
  21. OXYCODONE/APAP [Concomitant]
     Active Substance: ACETAMINOPHEN\OXYCODONE HYDROCHLORIDE
  22. CLINDAMYCIN. [Concomitant]
     Active Substance: CLINDAMYCIN
  23. NYSTATIN. [Concomitant]
     Active Substance: NYSTATIN
  24. PRILOSEC [Suspect]
     Active Substance: OMEPRAZOLE MAGNESIUM
     Indication: GASTROOESOPHAGEAL REFLUX DISEASE
     Route: 048
     Dates: start: 1997, end: 2019
  25. PEPTO?BISMOL [Concomitant]
     Active Substance: BISMUTH SUBSALICYLATE
     Dates: start: 1994, end: 1997
  26. TORSEMIDE. [Concomitant]
     Active Substance: TORSEMIDE
  27. CELLCEPT [Concomitant]
     Active Substance: MYCOPHENOLATE MOFETIL\MYCOPHENOLATE MOFETIL HYDROCHLORIDE
  28. ZOLPIDEM [Concomitant]
     Active Substance: ZOLPIDEM TARTRATE
  29. SIMVASTATIN. [Concomitant]
     Active Substance: SIMVASTATIN
  30. OXYCODONE [Concomitant]
     Active Substance: OXYCODONE
  31. LEUKERAN [Concomitant]
     Active Substance: CHLORAMBUCIL
  32. IRON [Concomitant]
     Active Substance: IRON
  33. PRILOSEC [Suspect]
     Active Substance: OMEPRAZOLE MAGNESIUM
     Indication: GASTROOESOPHAGEAL REFLUX DISEASE
     Route: 048
     Dates: start: 199912, end: 201001
  34. PRILOSEC [Suspect]
     Active Substance: OMEPRAZOLE MAGNESIUM
     Indication: GASTROOESOPHAGEAL REFLUX DISEASE
     Dosage: GENERIC
     Route: 065
     Dates: end: 2019
  35. PROTONIX [Suspect]
     Active Substance: PANTOPRAZOLE SODIUM
     Indication: GASTROOESOPHAGEAL REFLUX DISEASE
     Route: 065
     Dates: start: 199912, end: 201001
  36. VALACYCLOVIR [Concomitant]
     Active Substance: VALACYCLOVIR HYDROCHLORIDE
  37. QUININE [Concomitant]
     Active Substance: QUININE

REACTIONS (4)
  - Renal tubular necrosis [Unknown]
  - Acute kidney injury [Unknown]
  - Chronic kidney disease [Recovered/Resolved]
  - End stage renal disease [Recovered/Resolved]

NARRATIVE: CASE EVENT DATE: 1999
